FAERS Safety Report 17305043 (Version 1)
Quarter: 2020Q1

REPORT INFORMATION
  Report Type: Spontaneous
  Country: US (occurrence: US)
  Receive Date: 20200106
  Receipt Date: 20200106
  Transmission Date: 20200409
  Serious: No
  Sender: FDA-Public Use
  Company Number: None

PATIENT
  Age: 31 Year
  Sex: Female

DRUGS (1)
  1. ENBREL [Suspect]
     Active Substance: ETANERCEPT
     Indication: ANKYLOSING SPONDYLITIS
     Dosage: ?          OTHER FREQUENCY:OTHER;?
     Dates: start: 201908

REACTIONS (3)
  - Therapy cessation [None]
  - Ankylosing spondylitis [None]
  - Memory impairment [None]

NARRATIVE: CASE EVENT DATE: 20191230
